FAERS Safety Report 5506077-4 (Version None)
Quarter: 2007Q4

REPORT INFORMATION
  Report Type: 
  Country: None (occurrence: None)
  Receive Date: 20071105
  Receipt Date: 20071029
  Transmission Date: 20080405
  Serious: Yes (Hospitalization, Other)
  Sender: FDA-Public Use
  Company Number: PHBS2007GT18046

PATIENT
  Age: 77 Year
  Sex: Female

DRUGS (2)
  1. DIOVAN [Suspect]
     Indication: HYPERTENSION
     Dosage: 160 MG, UNK
     Route: 048
     Dates: start: 20050221
  2. CARBIMEN [Concomitant]
     Dosage: 10 MG, UNK
     Route: 048

REACTIONS (4)
  - BIOPSY BREAST [None]
  - BREAST MICROCALCIFICATION [None]
  - ISCHAEMIA [None]
  - VENTRICULAR EXTRASYSTOLES [None]
